FAERS Safety Report 17152596 (Version 1)
Quarter: 2019Q4

REPORT INFORMATION
  Report Type: Spontaneous
  Country: US (occurrence: US)
  Receive Date: 20191213
  Receipt Date: 20191213
  Transmission Date: 20200122
  Serious: No
  Sender: FDA-Public Use
  Company Number: US-NOVOPROD-637989

PATIENT
  Sex: Female

DRUGS (1)
  1. LEVEMIR [Suspect]
     Active Substance: INSULIN DETEMIR
     Indication: DIABETES MELLITUS
     Dosage: UNK
     Route: 065

REACTIONS (8)
  - Fatigue [Unknown]
  - Dehydration [Not Recovered/Not Resolved]
  - Rash [Unknown]
  - Electrolyte imbalance [Unknown]
  - Dizziness [Unknown]
  - Ill-defined disorder [Unknown]
  - Nausea [Unknown]
  - Balance disorder [Unknown]
